FAERS Safety Report 9065929 (Version 1)
Quarter: 2013Q1

REPORT INFORMATION
  Report Type: Report from Study
  Country: US (occurrence: US)
  Receive Date: 20130130
  Receipt Date: 20130130
  Transmission Date: 20140127
  Serious: No
  Sender: FDA-Public Use
  Company Number: US-ABBOTT-12P-163-0976155-00

PATIENT
  Age: 66 Year
  Sex: Male

DRUGS (3)
  1. HUMIRA [Suspect]
     Dates: start: 20120705
  2. CELEBREX [Concomitant]
     Indication: PAIN
     Dosage: DAILY
  3. UNKNOWN DRUG THAT BEGINS WITH SP [Concomitant]
     Indication: ARTHRITIS

REACTIONS (1)
  - Injection site pruritus [Recovering/Resolving]
